FAERS Safety Report 23249206 (Version 1)
Quarter: 2023Q4

REPORT INFORMATION
  Report Type: Spontaneous
  Country: IT (occurrence: IT)
  Receive Date: 20231201
  Receipt Date: 20231201
  Transmission Date: 20240110
  Serious: Yes (Other)
  Sender: FDA-Public Use
  Company Number: IT-JNJFOC-20230754244

PATIENT
  Age: 69 Year
  Sex: Male

DRUGS (12)
  1. MIDOSTAURIN [Suspect]
     Active Substance: MIDOSTAURIN
     Indication: Advanced systemic mastocytosis
     Dosage: 200 MG
     Route: 065
  2. MIDOSTAURIN [Suspect]
     Active Substance: MIDOSTAURIN
     Dosage: DOSE REDUCED
     Route: 065
  3. MIDOSTAURIN [Suspect]
     Active Substance: MIDOSTAURIN
     Dosage: 100 MG/DIE
     Route: 065
  4. DECITABINE [Suspect]
     Active Substance: DECITABINE
     Indication: Acute myeloid leukaemia
     Dosage: UNK, FIRST-LINE THERAPY
     Route: 065
  5. DECITABINE [Suspect]
     Active Substance: DECITABINE
     Dosage: 20?MG/M2 I.V. FOR 5?DAYS/CYCLE, TWO CYCLES
     Route: 042
  6. DECITABINE [Suspect]
     Active Substance: DECITABINE
     Dosage: 20 MG/M2, CYCLIC
     Route: 065
  7. DECITABINE [Suspect]
     Active Substance: DECITABINE
     Dosage: UNK, FIFTH CYCLE OF DEC-VEN
     Route: 065
  8. VENETOCLAX [Suspect]
     Active Substance: VENETOCLAX
     Indication: Acute myeloid leukaemia
     Dosage: UNK, FIRST LINE THERAPY
     Route: 065
  9. VENETOCLAX [Suspect]
     Active Substance: VENETOCLAX
     Dosage: THIRD CYCLE, 400 MG, QD, FOR 28 DAYS/CYCLE
     Route: 065
  10. VENETOCLAX [Suspect]
     Active Substance: VENETOCLAX
     Dosage: UNK, FIFTH CYCLE OF DEC-VEN
     Route: 065
  11. HYDROXYUREA [Concomitant]
     Active Substance: HYDROXYUREA
     Indication: Overlap syndrome
     Dosage: 500 MG, BID
     Route: 065
  12. HYDROXYUREA [Concomitant]
     Active Substance: HYDROXYUREA
     Dosage: 1000 MG, QD
     Route: 065

REACTIONS (3)
  - Drug ineffective [Unknown]
  - Thrombocytopenia [Unknown]
  - Haematotoxicity [Unknown]
